FAERS Safety Report 8455557-0 (Version None)
Quarter: 2012Q2

REPORT INFORMATION
  Report Type: 
  Country: None (occurrence: None)
  Receive Date: 20120621
  Receipt Date: 20120612
  Transmission Date: 20120825
  Serious: Yes (Other)
  Sender: FDA-Public Use
  Company Number: US-ASTRAZENECA-2012SE32515

PATIENT
  Age: 30446 Day
  Sex: Male
  Weight: 78.5 kg

DRUGS (5)
  1. AVIPHEX [Concomitant]
  2. NORVASC [Concomitant]
  3. CELEBREX [Concomitant]
  4. BRILINTA [Suspect]
     Indication: STENT PLACEMENT
     Route: 048
     Dates: start: 20120503
  5. ASPIRIN [Concomitant]

REACTIONS (2)
  - DYSPNOEA [None]
  - ANGINA UNSTABLE [None]
